FAERS Safety Report 11370273 (Version 1)
Quarter: 2015Q3

REPORT INFORMATION
  Report Type: Spontaneous
  Country: CN (occurrence: CN)
  Receive Date: 20150812
  Receipt Date: 20150812
  Transmission Date: 20151125
  Serious: Yes (Other)
  Sender: FDA-Public Use
  Company Number: CN-JNJFOC-20150802880

PATIENT

DRUGS (1)
  1. REMICADE [Suspect]
     Active Substance: INFLIXIMAB
     Indication: COLITIS ULCERATIVE
     Dosage: ARM ONE:3.5 MG/KG??ARM TWO:5MG/KG
     Route: 042

REACTIONS (6)
  - Drug specific antibody present [Unknown]
  - Antinuclear antibody positive [Unknown]
  - Adverse event [Unknown]
  - Double stranded DNA antibody [Unknown]
  - Infusion related reaction [Unknown]
  - Infection [Unknown]
